FAERS Safety Report 8365050-1 (Version None)
Quarter: 2012Q2

REPORT INFORMATION
  Report Type: 
  Country: None (occurrence: None)
  Receive Date: 20120516
  Receipt Date: 20120515
  Transmission Date: 20120825
  Serious: Yes (Other)
  Sender: FDA-Public Use
  Company Number: DE-VIIV HEALTHCARE LIMITED-D0075478A

PATIENT
  Age: 43 Year
  Sex: Male
  Weight: 80 kg

DRUGS (1)
  1. EPIVIR [Suspect]
     Indication: HIV TEST POSITIVE
     Route: 065
     Dates: start: 20110101

REACTIONS (1)
  - HEPATIC ENZYME INCREASED [None]
